FAERS Safety Report 7804793-2 (Version None)
Quarter: 2011Q4

REPORT INFORMATION
  Report Type: 
  Country: None (occurrence: None)
  Receive Date: 20111010
  Receipt Date: 20110921
  Transmission Date: 20120403
  Serious: Yes (Death)
  Sender: FDA-Public Use
  Company Number: US-CELGENEUS-163-21880-11092828

PATIENT
  Sex: Male
  Weight: 104.3 kg

DRUGS (1)
  1. REVLIMID [Suspect]
     Dosage: 15 MILLIGRAM
     Route: 048
     Dates: start: 20110714, end: 20110101

REACTIONS (1)
  - DEATH [None]
